FAERS Safety Report 21796707 (Version 1)
Quarter: 2022Q4

REPORT INFORMATION
  Report Type: Report from Study
  Country: CO (occurrence: CO)
  Receive Date: 20221230
  Receipt Date: 20221230
  Transmission Date: 20230112
  Serious: Yes (Hospitalization)
  Sender: FDA-Public Use
  Company Number: CO-BIOGEN-2022BI01177481

PATIENT
  Age: 32 Year
  Sex: Female
  Weight: 54 kg

DRUGS (2)
  1. PLEGRIDY [Suspect]
     Active Substance: PEGINTERFERON BETA-1A
     Indication: Multiple sclerosis
     Route: 050
     Dates: start: 20210113
  2. PREGABALIN [Concomitant]
     Active Substance: PREGABALIN
     Indication: Myalgia
     Route: 050
     Dates: start: 202209

REACTIONS (4)
  - Meconium abnormal [Unknown]
  - Maternal exposure during pregnancy [Recovered/Resolved]
  - Cholestasis [Unknown]
  - Premature baby [Unknown]

NARRATIVE: CASE EVENT DATE: 20211201
